FAERS Safety Report 18243768 (Version 3)
Quarter: 2020Q4

REPORT INFORMATION
  Report Type: Report from Study
  Country: NL (occurrence: NL)
  Receive Date: 20200908
  Receipt Date: 20201016
  Transmission Date: 20210113
  Serious: Yes (Other)
  Sender: FDA-Public Use
  Company Number: NL-MYLANLABS-2020M1076534

PATIENT
  Age: 50 Year
  Sex: Male
  Weight: 80 kg

DRUGS (4)
  1. GLATIRAMEERACETAAT MYLAN 40 MG/ML [Suspect]
     Active Substance: GLATIRAMER ACETATE
     Indication: MULTIPLE SCLEROSIS
     Dosage: 40 MILLIGRAM, 3XW
     Route: 058
     Dates: start: 20200207, end: 20200921
  2. COLECALCIFEROL [Concomitant]
     Active Substance: CHOLECALCIFEROL
     Indication: VITAMIN SUPPLEMENTATION
     Dosage: 1 DOSAGE FORM, QW
     Route: 048
  3. SILDENAFIL. [Concomitant]
     Active Substance: SILDENAFIL
     Indication: PRODUCT USED FOR UNKNOWN INDICATION
     Dosage: UNK
     Route: 048
  4. LORATADINE. [Concomitant]
     Active Substance: LORATADINE
     Indication: ANTIALLERGIC THERAPY
     Dosage: 10 MILLIGRAM, QD
     Route: 048

REACTIONS (3)
  - B-lymphocyte count increased [Not Recovered/Not Resolved]
  - Multiple sclerosis [Recovering/Resolving]
  - Drug ineffective [Unknown]

NARRATIVE: CASE EVENT DATE: 2020
